FAERS Safety Report 4842557-2 (Version None)
Quarter: 2005Q4

REPORT INFORMATION
  Report Type: 
  Country: None (occurrence: None)
  Receive Date: 20051129
  Receipt Date: 20051116
  Transmission Date: 20060501
  Serious: Yes (Other)
  Sender: FDA-Public Use
  Company Number: 218111

PATIENT
  Sex: Female
  Weight: 65 kg

DRUGS (6)
  1. AVASTIN [Suspect]
     Indication: OVARIAN CANCER METASTATIC
     Dosage: 10MG/KG, Q2W, INTRAVENOUS
     Route: 042
     Dates: start: 20050222, end: 20050321
  2. BAY 43-9006 (SORAFENIB) [Suspect]
     Indication: OVARIAN CANCER METASTATIC
     Dosage: 200 MG, BID,
     Dates: start: 20050222, end: 20050317
  3. MOTOFEN (ATROPINE SULFATE, DIFENOXIN) [Concomitant]
  4. ACETAMINOPHEN [Concomitant]
  5. OXYCODONE (OXYCODONE) [Concomitant]
  6. ANITBIOTIC ((ANTIBIOTICS NOS) [Concomitant]

REACTIONS (9)
  - DIARRHOEA [None]
  - FEMALE GENITAL TRACT FISTULA [None]
  - HAEMATOCHEZIA [None]
  - HAEMOGLOBIN DECREASED [None]
  - INFLAMMATION [None]
  - PAIN [None]
  - POUCHITIS [None]
  - RECTAL PERFORATION [None]
  - RECTAL ULCER [None]
